FAERS Safety Report 5908611-9 (Version None)
Quarter: 2008Q4

REPORT INFORMATION
  Report Type: 
  Country: None (occurrence: None)
  Receive Date: 20081001
  Receipt Date: 20080919
  Transmission Date: 20090506
  Serious: Yes (Hospitalization)
  Sender: FDA-Public Use
  Company Number: ABMOC-08-0382

PATIENT
  Age: 48 Year
  Sex: Female

DRUGS (10)
  1. ABRAXANE [Suspect]
     Indication: BREAST CANCER METASTATIC
     Dosage: LAST DOSE (255 MG) PRIOR TO SAE ON 08-JUL-08. (WEEKLY X3 THEN 1 WK. OFF)
     Dates: start: 20070905
  2. BEVACIZUMAB (BEVACIZUMAB) [Concomitant]
  3. ZOLEDRONIC ACID [Concomitant]
  4. NEXIUM [Concomitant]
  5. ATIVAN [Concomitant]
  6. CYMBALTA [Concomitant]
  7. MAGIC MOUTHWASH [Concomitant]
  8. OXYCODINE (OXYCODONE) [Concomitant]
  9. LEVAQUIN [Concomitant]
  10. PYRIDIUM (PHENAZOPYRIDINE HYDROCHLORIDE) [Concomitant]

REACTIONS (16)
  - BACTERIA URINE IDENTIFIED [None]
  - CANDIDIASIS [None]
  - FEBRILE NEUTROPENIA [None]
  - GENERALISED OEDEMA [None]
  - HAEMANGIOMA [None]
  - HEART RATE INCREASED [None]
  - HEPATIC CIRRHOSIS [None]
  - HEPATIC NEOPLASM [None]
  - ORAL CANDIDIASIS [None]
  - OROPHARYNGEAL PAIN [None]
  - PANCYTOPENIA [None]
  - PLEURAL EFFUSION [None]
  - PORTAL HYPERTENSION [None]
  - RESPIRATORY RATE INCREASED [None]
  - URINE KETONE BODY PRESENT [None]
  - WHITE BLOOD CELLS URINE POSITIVE [None]
